FAERS Safety Report 5059612-7 (Version None)
Quarter: 2006Q3

REPORT INFORMATION
  Report Type: 
  Country: None (occurrence: None)
  Receive Date: 20060724
  Receipt Date: 20051115
  Transmission Date: 20061208
  Serious: Yes (Death)
  Sender: FDA-Public Use
  Company Number: GBWYE144716NOV05

PATIENT
  Sex: Female
  Weight: 62 kg

DRUGS (3)
  1. ENBREL [Suspect]
     Indication: RHEUMATOID ARTHRITIS
     Route: 058
     Dates: start: 20050427, end: 20050910
  2. FOLIC ACID [Concomitant]
     Dosage: UNKNOWN
     Route: 065
  3. METHOTREXATE SODIUM [Concomitant]
     Dosage: UNKNOWN
     Route: 065

REACTIONS (2)
  - PULMONARY FIBROSIS [None]
  - RESPIRATORY FAILURE [None]
